FAERS Safety Report 21364534 (Version 1)
Quarter: 2022Q3

REPORT INFORMATION
  Report Type: Spontaneous
  Country: US (occurrence: US)
  Receive Date: 20220922
  Receipt Date: 20220922
  Transmission Date: 20221027
  Serious: No
  Sender: FDA-Public Use
  Company Number: US-JNJFOC-20220933186

PATIENT
  Age: 30 Month
  Sex: Female

DRUGS (1)
  1. CHILDRENS ZYRTEC [Suspect]
     Active Substance: CETIRIZINE HYDROCHLORIDE
     Indication: Product used for unknown indication
     Dosage: ADMINISTERED 2.5ML THEN ACCIDENTALLY DRANK ANOTHER 5ML
     Route: 048

REACTIONS (1)
  - Accidental overdose [Unknown]
